FAERS Safety Report 13803623 (Version 2)
Quarter: 2017Q3

REPORT INFORMATION
  Report Type: Report from Study
  Country: CO (occurrence: CO)
  Receive Date: 20170728
  Receipt Date: 20170901
  Transmission Date: 20171127
  Serious: Yes (Other)
  Sender: FDA-Public Use
  Company Number: CO-SA-2016SA200790

PATIENT
  Age: 24 Year
  Sex: Female
  Weight: 56 kg

DRUGS (1)
  1. LEMTRADA [Suspect]
     Active Substance: ALEMTUZUMAB
     Indication: MULTIPLE SCLEROSIS
     Route: 041
     Dates: start: 20160918, end: 20160922

REACTIONS (5)
  - Lymphocytosis [Recovered/Resolved]
  - Leukopenia [Recovered/Resolved]
  - Erythropenia [Recovered/Resolved]
  - Urine analysis abnormal [Recovered/Resolved]
  - Lymphopenia [Recovered/Resolved]

NARRATIVE: CASE EVENT DATE: 20161024
